FAERS Safety Report 24020453 (Version 1)
Quarter: 2024Q2

REPORT INFORMATION
  Report Type: Spontaneous
  Country: JP (occurrence: JP)
  Receive Date: 20240627
  Receipt Date: 20240627
  Transmission Date: 20240716
  Serious: Yes (Hospitalization, Other)
  Sender: FDA-Public Use
  Company Number: JP-SUN PHARMACEUTICAL INDUSTRIES LTD-2024R1-453147

PATIENT
  Age: 68 Year
  Sex: Male
  Weight: 80 kg

DRUGS (3)
  1. DEXMEDETOMIDINE [Suspect]
     Active Substance: DEXMEDETOMIDINE
     Indication: Sedation
     Dosage: 4 MICROGRAM/KILOGRAM/HOUR
     Route: 065
  2. PENTAZOCINE [Concomitant]
     Active Substance: PENTAZOCINE
     Indication: Sedation
     Dosage: 30 MILLIGRAM
     Route: 065
  3. PROPOFOL [Concomitant]
     Active Substance: PROPOFOL
     Indication: Sedation
     Dosage: 1.25 MILLIGRAM/KILOGRAM
     Route: 065

REACTIONS (1)
  - Vasospasm [Unknown]
